FAERS Safety Report 7805278-X (Version None)
Quarter: 2011Q4

REPORT INFORMATION
  Report Type: 
  Country: None (occurrence: None)
  Receive Date: 20111010
  Receipt Date: 20110929
  Transmission Date: 20120403
  Serious: Yes (Hospitalization)
  Sender: FDA-Public Use
  Company Number: PHHY2011RO77965

PATIENT
  Age: 3 Year
  Sex: Male

DRUGS (1)
  1. ASPIRIN [Suspect]
     Indication: HYPERTHERMIA

REACTIONS (17)
  - DEHYDRATION [None]
  - PEPTIC ULCER [None]
  - TACHYCARDIA [None]
  - CARDIAC MURMUR [None]
  - HYPOCHROMIC ANAEMIA [None]
  - ASTHENIA [None]
  - MELAENA [None]
  - VOMITING [None]
  - CONSTIPATION [None]
  - HAEMORRHAGIC ANAEMIA [None]
  - HAEMATEMESIS [None]
  - WEIGHT DECREASED [None]
  - ABDOMINAL PAIN UPPER [None]
  - OBSTRUCTION GASTRIC [None]
  - METABOLIC ALKALOSIS [None]
  - NEUTROPHILIA [None]
  - PALLOR [None]
